FAERS Safety Report 20459863 (Version 1)
Quarter: 2022Q1

REPORT INFORMATION
  Report Type: Report from Study
  Country: US (occurrence: None)
  Receive Date: 20220211
  Receipt Date: 20220211
  Transmission Date: 20220423
  Serious: Yes (Death)
  Sender: FDA-Public Use
  Company Number: US-ROCHE-1316002

PATIENT
  Age: 56 Year
  Sex: Male
  Weight: 84.6 kg

DRUGS (3)
  1. BEVACIZUMAB [Suspect]
     Active Substance: BEVACIZUMAB
     Indication: Squamous cell carcinoma of head and neck
     Dosage: OVER 30-90 MIN, LAST DOSE PRIOR TO EVENT ON 22/OCT/2013
     Route: 042
     Dates: start: 20131022
  2. DOCETAXEL [Suspect]
     Active Substance: DOCETAXEL
     Indication: Squamous cell carcinoma of head and neck
     Dosage: LAST DOSE PRIOR TO EVENT ON 22/OCT/2013?IN 250 CC NORMAL SALINE OVER 60 MINUTES
     Route: 042
     Dates: start: 20131022
  3. CISPLATIN [Suspect]
     Active Substance: CISPLATIN
     Indication: Squamous cell carcinoma of head and neck
     Dosage: OVER 1-2 HOURS, LAST DOSE PRIOR TO EVENT ON 22/OCT/2013?IN 250 CC NORMAL SALINE OVER 60 MINUTES
     Route: 042
     Dates: start: 20131022

REACTIONS (5)
  - Fistula [Fatal]
  - Injury [Fatal]
  - Poisoning [Fatal]
  - Procedural complication [Fatal]
  - Pharyngeal fistula [Fatal]

NARRATIVE: CASE EVENT DATE: 20131111
